FAERS Safety Report 5087934-2 (Version None)
Quarter: 2006Q3

REPORT INFORMATION
  Report Type: 
  Country: None (occurrence: None)
  Receive Date: 20060821
  Receipt Date: 20060811
  Transmission Date: 20061208
  Serious: Yes (Other)
  Sender: FDA-Public Use
  Company Number: 2006097838

PATIENT
  Age: 62 Year
  Sex: Female
  Weight: 62.5964 kg

DRUGS (2)
  1. BEN-GAY ULTRA (MENTHOL, CAMPHOR, METHYL SALICYLATE) [Suspect]
     Indication: BACK PAIN
     Dosage: 1 TABLESPOON ONCE, TOPICAL
     Route: 061
     Dates: start: 20060808, end: 20060808
  2. CALCIUM (CALCIUM) [Concomitant]

REACTIONS (3)
  - RASH [None]
  - SWOLLEN TONGUE [None]
  - URTICARIA [None]
